FAERS Safety Report 9422222 (Version 1)
Quarter: 2013Q3

REPORT INFORMATION
  Report Type: Spontaneous
  Country: BR (occurrence: BR)
  Receive Date: 20130726
  Receipt Date: 20130726
  Transmission Date: 20140515
  Serious: Yes (Other)
  Sender: FDA-Public Use
  Company Number: BR-PFIZER INC-2013215812

PATIENT
  Age: 64 Year
  Sex: Female
  Weight: 84 kg

DRUGS (4)
  1. ZOLOFT [Suspect]
     Indication: DEPRESSION
     Dosage: 100 MG (ONE TABLET), 1X/DAY
     Dates: start: 2004
  2. GLIFAGE [Concomitant]
     Dosage: UNK
  3. LIPITOR [Concomitant]
     Dosage: UNK
  4. TOPIRAMATE [Concomitant]
     Dosage: UNK

REACTIONS (4)
  - Drug dependence [Unknown]
  - Mood altered [Unknown]
  - Drug ineffective [Unknown]
  - Intentional drug misuse [Unknown]
